FAERS Safety Report 5450035-5 (Version None)
Quarter: 2007Q3

REPORT INFORMATION
  Report Type: 
  Country: None (occurrence: None)
  Receive Date: 20070912
  Receipt Date: 20070906
  Transmission Date: 20080115
  Serious: Yes (Hospitalization)
  Sender: FDA-Public Use
  Company Number: CA-AMGEN-US237046

PATIENT
  Sex: Male

DRUGS (8)
  1. PANITUMUMAB [Suspect]
     Indication: COLORECTAL CANCER
     Route: 042
     Dates: start: 20070403, end: 20070801
  2. PANITUMUMAB [Suspect]
     Route: 042
     Dates: start: 20070801, end: 20070801
  3. OXALIPLATIN [Suspect]
     Route: 065
  4. LEUCOVORIN [Suspect]
     Route: 065
  5. FLUOROURACIL [Suspect]
     Route: 065
  6. FERROUS FUMARATE [Concomitant]
     Route: 065
  7. MAGNESIUM OXIDE [Concomitant]
     Route: 065
  8. EPREX [Concomitant]
     Route: 065

REACTIONS (4)
  - ASTHENIA [None]
  - FAILURE TO THRIVE [None]
  - FALL [None]
  - MALIGNANT NEOPLASM PROGRESSION [None]
